FAERS Safety Report 6720582-4 (Version None)
Quarter: 2010Q2

REPORT INFORMATION
  Report Type: 
  Country: None (occurrence: None)
  Receive Date: 20100510
  Receipt Date: 20100425
  Transmission Date: 20101027
  Serious: Yes (Other)
  Sender: FDA-Public Use
  Company Number: 2010SCPR000581

PATIENT
  Age: 22 Year
  Sex: Female

DRUGS (2)
  1. DOXYCYCLINE MONOHYDRATE [Suspect]
     Indication: ACNE
     Dosage: 100 MG, BID
     Dates: start: 20100412, end: 20100423
  2. YAZ [Concomitant]

REACTIONS (6)
  - BLISTER [None]
  - IMPAIRED WORK ABILITY [None]
  - PARAESTHESIA [None]
  - PHOTOSENSITIVITY REACTION [None]
  - RASH [None]
  - SKIN BURNING SENSATION [None]
